FAERS Safety Report 5220893-8 (Version None)
Quarter: 2007Q1

REPORT INFORMATION
  Report Type: 
  Country: None (occurrence: None)
  Receive Date: 20070126
  Receipt Date: 20070117
  Transmission Date: 20070707
  Serious: Yes (Hospitalization)
  Sender: FDA-Public Use
  Company Number: FR-GLAXOSMITHKLINE-B0453535A

PATIENT
  Age: 59 Year
  Sex: Female
  Weight: 59 kg

DRUGS (11)
  1. ALKERAN [Suspect]
     Route: 042
  2. ARACYTINE [Suspect]
     Route: 042
  3. ETOPOSIDE [Suspect]
     Route: 042
  4. BICNU [Suspect]
     Route: 042
  5. KEPIVANCE [Concomitant]
     Indication: PROPHYLAXIS
     Route: 065
  6. PAROXETINE HCL [Concomitant]
     Route: 065
     Dates: start: 20051001
  7. BACTRIM [Concomitant]
     Route: 065
     Dates: start: 20051001
  8. SPECIAFOLDINE [Concomitant]
     Route: 065
     Dates: start: 20051001
  9. ZOLPIDEM TARTRATE [Concomitant]
     Route: 065
     Dates: start: 20060427
  10. DIFFU K [Concomitant]
     Route: 065
     Dates: start: 20060427
  11. AUTOGRAFT OF PERIPHERAL BLOOD STEM CELLS [Concomitant]
     Route: 042
     Dates: start: 20060214, end: 20060214

REACTIONS (4)
  - MUCOSAL INFLAMMATION [None]
  - PNEUMONIA RESPIRATORY SYNCYTIAL VIRAL [None]
  - RENAL FAILURE [None]
  - RENAL FAILURE ACUTE [None]
